FAERS Safety Report 5877760-6 (Version None)
Quarter: 2008Q3

REPORT INFORMATION
  Report Type: 
  Country: None (occurrence: None)
  Receive Date: 20080911
  Receipt Date: 20080904
  Transmission Date: 20090109
  Serious: Yes (Hospitalization)
  Sender: FDA-Public Use
  Company Number: DE-AMGEN-US306537

PATIENT

DRUGS (2)
  1. ENBREL [Suspect]
     Indication: JUVENILE ARTHRITIS
     Dosage: UNKNOWN
     Route: 058
     Dates: end: 20080701
  2. HUMIRA [Suspect]
     Indication: JUVENILE ARTHRITIS
     Dosage: UNKNOWN
     Route: 058
     Dates: start: 20080801

REACTIONS (7)
  - ANTINUCLEAR ANTIBODY POSITIVE [None]
  - BLOOD CREATININE INCREASED [None]
  - C-REACTIVE PROTEIN INCREASED [None]
  - COLLAGEN DISORDER [None]
  - HAEMATURIA [None]
  - MYOCARDITIS [None]
  - SYSTEMIC LUPUS ERYTHEMATOSUS [None]
